FAERS Safety Report 7437574-2 (Version None)
Quarter: 2011Q2

REPORT INFORMATION
  Report Type: 
  Country: None (occurrence: None)
  Receive Date: 20110426
  Receipt Date: 20110414
  Transmission Date: 20111010
  Serious: Yes (Other)
  Sender: FDA-Public Use
  Company Number: US-ELI_LILLY_AND_COMPANY-US201104004765

PATIENT
  Sex: Female

DRUGS (7)
  1. FORTEO [Suspect]
     Indication: OSTEOPOROSIS
     Dosage: 20 UG, QD
     Route: 065
  2. METOPROLOL [Concomitant]
     Dosage: UNK, UNKNOWN
     Route: 065
  3. SEROQUEL [Concomitant]
     Dosage: UNK, UNKNOWN
     Route: 065
  4. DURAGESIC [Concomitant]
     Dosage: UNK, UNKNOWN
     Route: 065
  5. LORTAB [Concomitant]
     Dosage: UNK, UNKNOWN
     Route: 065
  6. MEGACE [Concomitant]
     Dosage: UNK, UNKNOWN
     Route: 065
  7. BETA BLOCKING AGENTS [Concomitant]
     Dosage: UNK, UNKNOWN
     Route: 065

REACTIONS (1)
  - KNEE OPERATION [None]
